FAERS Safety Report 6107804-8 (Version None)
Quarter: 2009Q1

REPORT INFORMATION
  Report Type: 
  Country: None (occurrence: None)
  Receive Date: 20090309
  Receipt Date: 20090225
  Transmission Date: 20090719
  Serious: Yes (Death)
  Sender: FDA-Public Use
  Company Number: B0563075A

PATIENT
  Age: 54 Year
  Sex: Male

DRUGS (15)
  1. MELPHALAN [Suspect]
     Indication: MULTIPLE MYELOMA
     Dosage: 280MGM2 PER DAY
  2. CYCLOPHOSPHAMIDE [Suspect]
  3. THALIDOMIDE [Concomitant]
  4. RADIOTHERAPY [Concomitant]
  5. CISPLATIN [Concomitant]
  6. BORTEZOMIB [Concomitant]
  7. CYTARABINE [Concomitant]
  8. ETOPOSIDE [Concomitant]
  9. CYTARABINE [Concomitant]
  10. METHOTREXATE [Concomitant]
  11. HYDROCORTISONE [Concomitant]
  12. NEUPOGEN [Concomitant]
  13. VINCRISTINE [Concomitant]
  14. ADRIAMYCIN PFS [Concomitant]
  15. DEXAMETHASONE [Concomitant]

REACTIONS (8)
  - DIARRHOEA [None]
  - ENGRAFTMENT SYNDROME [None]
  - FEBRILE NEUTROPENIA [None]
  - GRAFT VERSUS HOST DISEASE [None]
  - ILEAL ULCER [None]
  - LEUKAEMIA PLASMACYTIC [None]
  - MYELOMA RECURRENCE [None]
  - NERVOUS SYSTEM DISORDER [None]
